FAERS Safety Report 16552287 (Version 1)
Quarter: 2019Q3

REPORT INFORMATION
  Report Type: Spontaneous
  Country: US (occurrence: US)
  Receive Date: 20190710
  Receipt Date: 20190710
  Transmission Date: 20191004
  Serious: No
  Sender: FDA-Public Use
  Company Number: US-PFIZER INC-2019291988

PATIENT
  Age: 72 Year
  Sex: Female

DRUGS (4)
  1. ADVIL [Suspect]
     Active Substance: IBUPROFEN
     Dosage: 400 MG, 1X/DAY (SHE TOOK 2 MORE THIS MORNING)
  2. ADVIL [Suspect]
     Active Substance: IBUPROFEN
     Indication: BURSITIS
     Dosage: 200 MG, 3X/DAY
  3. ADVIL [Suspect]
     Active Substance: IBUPROFEN
     Dosage: 800 MG, UNK (4 DOSES DURING THAT TIME)
  4. ADVIL [Suspect]
     Active Substance: IBUPROFEN
     Indication: INTERVERTEBRAL DISC DEGENERATION
     Dosage: 400 MG, EVERY 4 HRS
     Route: 048
     Dates: start: 20190628

REACTIONS (2)
  - Skin discolouration [Not Recovered/Not Resolved]
  - Blister [Not Recovered/Not Resolved]

NARRATIVE: CASE EVENT DATE: 20190628
